FAERS Safety Report 8525966-X (Version None)
Quarter: 2012Q3

REPORT INFORMATION
  Report Type: 
  Country: None (occurrence: None)
  Receive Date: 20120720
  Receipt Date: 20120713
  Transmission Date: 20120928
  Serious: Yes (Other)
  Sender: FDA-Public Use
  Company Number: US-FRI-1000020614

PATIENT
  Sex: Female
  Weight: 69 kg

DRUGS (4)
  1. PRENATAL VITAMIN WITH FOLIC ACID [Concomitant]
     Indication: PREGNANCY
     Dosage: 1 PILL
     Route: 048
     Dates: start: 20110401
  2. SAVELLA [Suspect]
     Indication: FIBROMYALGIA
     Dosage: 100 MG
     Route: 048
  3. PROZAC [Concomitant]
     Indication: DEPRESSION
     Dosage: 40 MG
     Route: 048
  4. VITAMIN B-12 [Concomitant]
     Indication: GASTRIC BYPASS

REACTIONS (2)
  - HELLP SYNDROME [None]
  - MATERNAL EXPOSURE DURING PREGNANCY [None]
